FAERS Safety Report 9661253 (Version 1)
Quarter: 2013Q4

REPORT INFORMATION
  Report Type: Spontaneous
  Country: SG (occurrence: SG)
  Receive Date: 20131031
  Receipt Date: 20131031
  Transmission Date: 20140711
  Serious: Yes (Other)
  Sender: FDA-Public Use
  Company Number: SG-UCBSA-101848

PATIENT
  Age: 56 Year
  Sex: Female

DRUGS (2)
  1. OMEPRAZOLE [Suspect]
  2. ASPIRIN [Suspect]

REACTIONS (1)
  - Hypersensitivity vasculitis [Unknown]
